FAERS Safety Report 17102820 (Version 1)
Quarter: 2019Q4

REPORT INFORMATION
  Report Type: Spontaneous
  Country: CA (occurrence: CA)
  Receive Date: 20191203
  Receipt Date: 20191203
  Transmission Date: 20200122
  Serious: Yes (Other)
  Sender: FDA-Public Use
  Company Number: CA-CELLTRION INC.-2018CA019448

PATIENT

DRUGS (15)
  1. INFLECTRA [Suspect]
     Active Substance: INFLIXIMAB-DYYB
     Dosage: 460 MG, EVERY 2,6 WEEKS THEN EVERY 8 WEEKS
     Route: 042
     Dates: start: 20180821
  2. INFLECTRA [Suspect]
     Active Substance: INFLIXIMAB-DYYB
     Dosage: 460 MG, EVERY 2,6 WEEKS THEN EVERY 8 WEEKS
     Route: 042
     Dates: start: 20181010
  3. INFLECTRA [Suspect]
     Active Substance: INFLIXIMAB-DYYB
     Dosage: 460 MG, EVERY 2,6 WEEKS THEN EVERY 8 WEEKS
     Route: 042
     Dates: start: 20190731
  4. PREDNISONE. [Concomitant]
     Active Substance: PREDNISONE
     Dosage: 40 MG, DAILY
     Route: 048
     Dates: start: 201712
  5. INFLECTRA [Suspect]
     Active Substance: INFLIXIMAB-DYYB
     Dosage: 460 MG, EVERY 2,6 WEEKS THEN EVERY 8 WEEKS
     Route: 042
     Dates: start: 20190130
  6. ASACOL [Concomitant]
     Active Substance: MESALAMINE
     Dosage: 800 MG, 2X/DAY
     Route: 048
     Dates: start: 2003
  7. INFLECTRA [Suspect]
     Active Substance: INFLIXIMAB-DYYB
     Dosage: 400 MG, EVERY 2, 6 WEEKS THEN EVERY 8 WEEKS
     Route: 042
     Dates: start: 20180315, end: 20180328
  8. INFLECTRA [Suspect]
     Active Substance: INFLIXIMAB-DYYB
     Dosage: 460 MG, EVERY 2,6 WEEKS THEN EVERY 8 WEEKS
     Route: 042
     Dates: start: 20180425
  9. INFLECTRA [Suspect]
     Active Substance: INFLIXIMAB-DYYB
     Dosage: 460 MG, EVERY 2,6 WEEKS THEN EVERY 8 WEEKS
     Route: 042
     Dates: start: 20190926
  10. INFLECTRA [Suspect]
     Active Substance: INFLIXIMAB-DYYB
     Dosage: 460 MG, EVERY 2,6 WEEKS THEN EVERY 8 WEEKS
     Route: 042
     Dates: start: 20191119
  11. INFLECTRA [Suspect]
     Active Substance: INFLIXIMAB-DYYB
     Dosage: 460 MG, EVERY 2,6 WEEKS THEN EVERY 8 WEEKS
     Route: 042
     Dates: start: 20190410
  12. INFLECTRA [Suspect]
     Active Substance: INFLIXIMAB-DYYB
     Dosage: 460 MG, EVERY 2,6 WEEKS THEN EVERY 8 WEEKS
     Route: 042
     Dates: start: 20190611
  13. IMURAN [Concomitant]
     Active Substance: AZATHIOPRINE
     Dosage: 150 MG, DAILY
     Route: 048
     Dates: start: 201710
  14. INFLECTRA [Suspect]
     Active Substance: INFLIXIMAB-DYYB
     Dosage: 400 MG, EVERY 2, 6 WEEKS THEN EVERY 8 WEEKS
     Route: 042
     Dates: start: 20180328
  15. LIPITOR [Concomitant]
     Active Substance: ATORVASTATIN CALCIUM
     Dosage: 10 MG, DAILY
     Route: 048
     Dates: start: 2000

REACTIONS (6)
  - Rectal haemorrhage [Unknown]
  - Blood pressure fluctuation [Unknown]
  - Inappropriate schedule of product administration [Unknown]
  - Frequent bowel movements [Unknown]
  - Incorrect dose administered [Unknown]
  - Condition aggravated [Not Recovered/Not Resolved]

NARRATIVE: CASE EVENT DATE: 20180328
